FAERS Safety Report 20080663 (Version 1)
Quarter: 2021Q4

REPORT INFORMATION
  Report Type: Spontaneous
  Country: US (occurrence: US)
  Receive Date: 20211117
  Receipt Date: 20211117
  Transmission Date: 20220303
  Serious: Yes (Other)
  Sender: FDA-Public Use
  Company Number: US-MYLANLABS-2021M1084773

PATIENT
  Age: 64 Year
  Sex: Male

DRUGS (4)
  1. MYCOPHENOLATE MOFETIL [Suspect]
     Active Substance: MYCOPHENOLATE MOFETIL
     Indication: C3 glomerulopathy
     Dosage: UNKNOWN STARTING DOSE, LATER INCREASED
     Route: 065
  2. MYCOPHENOLATE MOFETIL [Suspect]
     Active Substance: MYCOPHENOLATE MOFETIL
     Dosage: 3 GRAM, QD (MAXIMUM DOSE)
     Route: 065
  3. PREDNISONE [Concomitant]
     Active Substance: PREDNISONE
     Indication: C3 glomerulopathy
     Dosage: 60 MILLIGRAM, QD (TAPER)
     Route: 065
  4. VALSARTAN [Concomitant]
     Active Substance: VALSARTAN
     Indication: C3 glomerulopathy
     Dosage: UNK
     Route: 065

REACTIONS (2)
  - Treatment failure [Unknown]
  - Off label use [Unknown]
